FAERS Safety Report 24742822 (Version 1)
Quarter: 2024Q4

REPORT INFORMATION
  Report Type: Spontaneous
  Country: US (occurrence: US)
  Receive Date: 20241217
  Receipt Date: 20241217
  Transmission Date: 20250115
  Serious: Yes (Other)
  Sender: PFIZER
  Company Number: US-PFIZER INC-202400322030

PATIENT
  Age: 73 Year
  Sex: Male

DRUGS (2)
  1. METHOTREXATE SODIUM [Suspect]
     Active Substance: METHOTREXATE SODIUM
     Indication: Psoriasis
     Dosage: 0.5 ML, WEEKLY
     Route: 058
     Dates: start: 2004
  2. METHOTREXATE SODIUM [Suspect]
     Active Substance: METHOTREXATE SODIUM
     Dosage: UNK, WEEKLY (HALF DOSE = 20 UNITS ON THE INSULIN SYRINGE)
     Route: 058

REACTIONS (7)
  - Heart valve replacement [Unknown]
  - Amyloidosis [Unknown]
  - Anxiety [Unknown]
  - Blood pressure increased [Unknown]
  - Ventricular extrasystoles [Unknown]
  - Intentional product misuse [Unknown]
  - Off label use [Unknown]

NARRATIVE: CASE EVENT DATE: 20220701
